FAERS Safety Report 24129176 (Version 2)
Quarter: 2024Q3

REPORT INFORMATION
  Report Type: Spontaneous
  Country: FR (occurrence: FR)
  Receive Date: 20240723
  Receipt Date: 20240923
  Transmission Date: 20241016
  Serious: Yes (Death, Life-Threatening, Hospitalization, Other)
  Sender: MERCK
  Company Number: FR-009507513-2407FRA011130

PATIENT
  Sex: Female

DRUGS (21)
  1. KEYTRUDA [Suspect]
     Active Substance: PEMBROLIZUMAB
     Indication: Triple negative breast cancer
     Dosage: 200 MILLIGRAM, Q3W
     Route: 042
     Dates: start: 20230612, end: 20240612
  2. KEYTRUDA [Suspect]
     Active Substance: PEMBROLIZUMAB
     Dosage: 200 MILLIGRAM, Q3W
     Route: 042
     Dates: start: 20230703, end: 20230703
  3. KEYTRUDA [Suspect]
     Active Substance: PEMBROLIZUMAB
     Dosage: 200 MILLIGRAM, Q3W
     Route: 042
     Dates: start: 20230724, end: 20230724
  4. KEYTRUDA [Suspect]
     Active Substance: PEMBROLIZUMAB
     Dosage: 200 MILLIGRAM, Q3W
     Route: 042
     Dates: start: 20230818, end: 20230904
  5. PEMBROLIZUMAB [Suspect]
     Active Substance: PEMBROLIZUMAB
     Indication: Triple negative breast cancer
     Dosage: 200 MILLIGRAM, Q3W
     Route: 042
     Dates: start: 20231201, end: 20231221
  6. PEMBROLIZUMAB [Suspect]
     Active Substance: PEMBROLIZUMAB
     Dosage: 200 MILLIGRAM, Q3W
     Route: 042
     Dates: start: 20240124, end: 20240124
  7. CARBOPLATIN [Suspect]
     Active Substance: CARBOPLATIN
     Indication: Triple negative breast cancer
     Dosage: 4 CYCLES
     Dates: start: 20230612, end: 20230904
  8. PACLITAXEL [Suspect]
     Active Substance: PACLITAXEL
     Indication: Triple negative breast cancer
     Dosage: 4 CYCLES
     Dates: start: 20230612, end: 20230904
  9. ZOPICLONE [Concomitant]
     Active Substance: ZOPICLONE
     Route: 048
  10. SERETIDE [Concomitant]
     Active Substance: FLUTICASONE PROPIONATE\SALMETEROL XINAFOATE
     Dosage: 1 DOSAGE FORM, BID
  11. POTASSIUM CHLORIDE [Concomitant]
     Active Substance: POTASSIUM CHLORIDE
     Route: 048
  12. LERCANIDIPINE [Concomitant]
     Active Substance: LERCANIDIPINE
     Dosage: UNK, QD
  13. AMIODARONE [Concomitant]
     Active Substance: AMIODARONE
     Dosage: UNK UNK, QD
     Route: 048
  14. URAPIDIL [Concomitant]
     Active Substance: URAPIDIL
     Route: 048
  15. FUROSEMIDE [Concomitant]
     Active Substance: FUROSEMIDE
     Dosage: UNK, BID
  16. VALIUM [Concomitant]
     Active Substance: DIAZEPAM
     Dosage: UNK, TID
     Route: 048
  17. KARDEGIC [Concomitant]
     Active Substance: ASPIRIN DL-LYSINE
     Route: 048
  18. LEVOTHYROXINE [Concomitant]
     Active Substance: LEVOTHYROXINE\LEVOTHYROXINE SODIUM
     Dosage: 1 DOSAGE FORM, QD, STRENGTH: 100 MICROGRAM
  19. LEVOTHYROXINE [Concomitant]
     Active Substance: LEVOTHYROXINE\LEVOTHYROXINE SODIUM
     Dosage: 0.5 DOSAGE FORM, QD, STRENGTH: 25 MICROGRAM
     Route: 048
  20. WARFARIN SODIUM [Concomitant]
     Active Substance: WARFARIN SODIUM
     Dosage: 2 DOSAGE FORM, QOD
     Route: 048
  21. SIMVASTATIN [Concomitant]
     Active Substance: SIMVASTATIN
     Dosage: UNK, QD
     Route: 048

REACTIONS (11)
  - Adverse event [Fatal]
  - Shock [Unknown]
  - General physical health deterioration [Unknown]
  - Interstitial lung disease [Unknown]
  - Hypoventilation [Unknown]
  - Emphysema [Unknown]
  - Asthenia [Unknown]
  - Gait disturbance [Unknown]
  - Fall [Unknown]
  - Constipation [Unknown]
  - Inappropriate schedule of product administration [Unknown]

NARRATIVE: CASE EVENT DATE: 20230818
